FAERS Safety Report 9773283 (Version 2)
Quarter: 2014Q1

REPORT INFORMATION
  Report Type: Spontaneous
  Country: JP (occurrence: JP)
  Receive Date: 20131219
  Receipt Date: 20140113
  Transmission Date: 20141002
  Serious: Yes (Other)
  Sender: FDA-Public Use
  Company Number: JP-GLAXOSMITHKLINE-B0954339A

PATIENT
  Age: 26 Year
  Sex: Male
  Weight: 140 kg

DRUGS (8)
  1. PAXIL [Suspect]
     Indication: AUTISM SPECTRUM DISORDER
     Route: 048
  2. LAMICTAL [Suspect]
     Indication: PRODUCT USED FOR UNKNOWN INDICATION
     Dosage: 25MG ALTERNATE DAYS
     Route: 048
     Dates: start: 20131227
  3. FLUNITRAZEPAM [Concomitant]
     Route: 048
  4. VEGETAMIN [Concomitant]
     Route: 048
  5. AKINETON [Concomitant]
     Route: 048
  6. NEULEPTIL [Concomitant]
     Route: 048
  7. TEGRETOL [Concomitant]
     Route: 048
  8. RISPERIDONE [Concomitant]
     Route: 048

REACTIONS (10)
  - Suicide attempt [Recovered/Resolved]
  - Diabetes mellitus [Unknown]
  - Screaming [Unknown]
  - Obesity [Unknown]
  - Hypertension [Unknown]
  - Euphoric mood [Unknown]
  - Confusional state [Unknown]
  - Diarrhoea [Unknown]
  - Increased appetite [Unknown]
  - Weight increased [Unknown]
